FAERS Safety Report 10091000 (Version 2)
Quarter: 2014Q2

REPORT INFORMATION
  Report Type: Report from Study
  Country: MX (occurrence: MX)
  Receive Date: 20140421
  Receipt Date: 20140609
  Transmission Date: 20141212
  Serious: No
  Sender: FDA-Public Use
  Company Number: PHHY2014MX048379

PATIENT
  Sex: Male
  Weight: 82 kg

DRUGS (5)
  1. STALEVO [Suspect]
     Indication: EXTRAPYRAMIDAL DISORDER
     Dosage: 0.125 DF (100/25/20 MG), UNK
     Route: 048
  2. STALEVO [Suspect]
     Indication: OFF LABEL USE
     Dosage: 0.25 DF(100/25/20 MG), UNK
     Route: 048
  3. STALEVO [Suspect]
     Dosage: UKN (200/150/37.5 MG), UNK
     Route: 048
     Dates: start: 20140207
  4. TRILEPTAL [Suspect]
     Indication: EMOTIONAL DISORDER
     Dosage: 3 DF, DAILY
     Route: 048
     Dates: start: 2002
  5. HALDOL DECANOAS [Concomitant]
     Dosage: 50 MG, UNK

REACTIONS (1)
  - Wrong technique in drug usage process [Not Recovered/Not Resolved]
